FAERS Safety Report 11804717 (Version 1)
Quarter: 2015Q4

REPORT INFORMATION
  Report Type: Spontaneous
  Country: US (occurrence: US)
  Receive Date: 20151205
  Receipt Date: 20151205
  Transmission Date: 20160305
  Serious: No
  Sender: FDA-Public Use
  Company Number: US-B.I. PHARMACEUTICALS,INC./RIDGEFIELD-2015-BI-65801BP

PATIENT
  Age: 71 Year
  Sex: Male
  Weight: 154 kg

DRUGS (12)
  1. OMEPRAZOLE. [Concomitant]
     Active Substance: OMEPRAZOLE
     Indication: IMPAIRED GASTRIC EMPTYING
     Dosage: 20 MG
     Route: 048
     Dates: start: 2008, end: 20151110
  2. OMEPRAZOLE. [Concomitant]
     Active Substance: OMEPRAZOLE
     Dosage: DOSE PER APPLICATION: 20 MG; FORMULATION: CAPSULE
     Route: 048
     Dates: start: 20151116
  3. LISINOPRIL. [Concomitant]
     Active Substance: LISINOPRIL
     Indication: CARDIAC DISORDER
     Dosage: 20 MG
     Route: 048
     Dates: start: 2003
  4. ALLOPURINOL. [Concomitant]
     Active Substance: ALLOPURINOL
     Indication: PROPHYLAXIS
     Dosage: DOSE PER APPLICATION: 80 MG; FORMULATION: TABLET
     Route: 048
     Dates: start: 2008
  5. LEVEMIR [Concomitant]
     Active Substance: INSULIN DETEMIR
     Indication: DIABETES MELLITUS
     Dosage: 40 U
     Route: 058
     Dates: start: 2008
  6. ZANTAC [Suspect]
     Active Substance: RANITIDINE HYDROCHLORIDE
     Indication: IMPAIRED GASTRIC EMPTYING
     Dosage: 150 MG
     Route: 048
     Dates: start: 20151116
  7. WARFARN [Concomitant]
     Indication: ANTICOAGULANT THERAPY
     Dosage: 7.5 MG
     Route: 048
     Dates: start: 2005
  8. NOVOLOG [Concomitant]
     Active Substance: INSULIN ASPART
     Indication: DIABETES MELLITUS
     Dosage: 60 U
     Route: 058
     Dates: start: 2008
  9. OMEPRAZOLE. [Concomitant]
     Active Substance: OMEPRAZOLE
     Dosage: DOSE PER APPLICATION: 20 MG; FORMULATION: CAPSULE
     Route: 048
     Dates: start: 20151111, end: 20151115
  10. SIMVASTATIN. [Concomitant]
     Active Substance: SIMVASTATIN
     Indication: CARDIAC DISORDER
     Dosage: 80 MG
     Route: 048
     Dates: start: 2009
  11. SOTALOL. [Concomitant]
     Active Substance: SOTALOL
     Indication: ARRHYTHMIA PROPHYLAXIS
     Dosage: 320 MG
     Route: 048
     Dates: start: 2010
  12. LEVOTHYROXINE. [Concomitant]
     Active Substance: LEVOTHYROXINE
     Indication: THYROID DISORDER
     Dosage: 0.2 MG
     Route: 048
     Dates: start: 1983

REACTIONS (3)
  - Sleep disorder [Not Recovered/Not Resolved]
  - Faeces discoloured [Not Recovered/Not Resolved]
  - Off label use [Not Recovered/Not Resolved]

NARRATIVE: CASE EVENT DATE: 20151116
